FAERS Safety Report 18916984 (Version 1)
Quarter: 2021Q1

REPORT INFORMATION
  Report Type: Spontaneous
  Country: US (occurrence: US)
  Receive Date: 20210219
  Receipt Date: 20210219
  Transmission Date: 20210420
  Serious: Yes (Other)
  Sender: FDA-Public Use
  Company Number: US-ASTRAZENECA-2021A057426

PATIENT
  Sex: Female
  Weight: 97.5 kg

DRUGS (54)
  1. CYMBALTA [Concomitant]
     Active Substance: DULOXETINE HYDROCHLORIDE
     Indication: DEPRESSION
  2. JANUMET [Concomitant]
     Active Substance: METFORMIN HYDROCHLORIDE\SITAGLIPTIN PHOSPHATE
     Indication: DIABETES MELLITUS
  3. SEROQUEL [Concomitant]
     Active Substance: QUETIAPINE FUMARATE
     Indication: INSOMNIA
  4. PERCOCET [Concomitant]
     Active Substance: ACETAMINOPHEN\OXYCODONE HYDROCHLORIDE
  5. DILTIAZEM. [Concomitant]
     Active Substance: DILTIAZEM
  6. IRON [Concomitant]
     Active Substance: IRON
  7. PRILOSEC [Suspect]
     Active Substance: OMEPRAZOLE MAGNESIUM
     Indication: GASTROOESOPHAGEAL REFLUX DISEASE
     Dosage: GENERIC
     Route: 065
     Dates: start: 2013
  8. VITAMIN D3 [Concomitant]
     Active Substance: CHOLECALCIFEROL
     Indication: SUPPLEMENTATION THERAPY
  9. MEDROXY PROGESTERONE [Concomitant]
  10. LORATADINE. [Concomitant]
     Active Substance: LORATADINE
  11. QVAR [Concomitant]
     Active Substance: BECLOMETHASONE DIPROPIONATE
  12. XYLOCAINE [Concomitant]
     Active Substance: LIDOCAINE HYDROCHLORIDE
  13. ALBUTEROL. [Concomitant]
     Active Substance: ALBUTEROL
  14. VOLTAREN [Concomitant]
     Active Substance: DICLOFENAC SODIUM
  15. BUPRENOPHINE [Concomitant]
     Active Substance: BUPRENORPHINE
  16. THERAGRAN [Concomitant]
     Active Substance: VITAMINS
  17. AMBIEN [Concomitant]
     Active Substance: ZOLPIDEM TARTRATE
  18. MYCOLOG [Concomitant]
     Active Substance: GRAMICIDIN\NEOMYCIN SULFATE\NYSTATIN\TRIAMCINOLONE ACETONIDE
  19. MIRALAX [Concomitant]
     Active Substance: POLYETHYLENE GLYCOL 3350
  20. NICODERM CQ [Concomitant]
     Active Substance: NICOTINE
  21. METFORMIN [Concomitant]
     Active Substance: METFORMIN HYDROCHLORIDE
     Indication: DIABETES MELLITUS
  22. BABY ASPIRIN [Concomitant]
     Active Substance: ASPIRIN
     Indication: PAIN
  23. PREVACID [Suspect]
     Active Substance: LANSOPRAZOLE
     Indication: GASTROOESOPHAGEAL REFLUX DISEASE
     Route: 065
     Dates: start: 2000, end: 2014
  24. CARDIZEM [Concomitant]
     Active Substance: DILTIAZEM HYDROCHLORIDE
     Indication: CARDIAC DISORDER
  25. LOSARTAN. [Concomitant]
     Active Substance: LOSARTAN
     Indication: BLOOD PRESSURE ABNORMAL
  26. TRESIBA [Concomitant]
     Active Substance: INSULIN DEGLUDEC
     Indication: DIABETES MELLITUS
  27. CRESTOR [Concomitant]
     Active Substance: ROSUVASTATIN CALCIUM
     Indication: BLOOD CHOLESTEROL
  28. DEPO?PROVERA [Concomitant]
     Active Substance: MEDROXYPROGESTERONE ACETATE
     Indication: CONTRACEPTION
  29. RANITIDINE. [Concomitant]
     Active Substance: RANITIDINE
     Dates: start: 20160612, end: 2020
  30. VIBRA [Concomitant]
  31. CETRIZINE [Concomitant]
     Active Substance: CETIRIZINE HYDROCHLORIDE
  32. DULOXETINE. [Concomitant]
     Active Substance: DULOXETINE
  33. TORADOL [Concomitant]
     Active Substance: KETOROLAC TROMETHAMINE
  34. NEXIUM [Suspect]
     Active Substance: ESOMEPRAZOLE MAGNESIUM
     Indication: GASTROOESOPHAGEAL REFLUX DISEASE
     Route: 048
  35. LISINOPRIL. [Concomitant]
     Active Substance: LISINOPRIL
     Indication: BLOOD PRESSURE ABNORMAL
  36. NOVOLOG [Concomitant]
     Active Substance: INSULIN ASPART
     Indication: DIABETES MELLITUS
  37. OXYCODONE [Concomitant]
     Active Substance: OXYCODONE
     Indication: PAIN
  38. SITAGLIPTIN [Concomitant]
     Active Substance: SITAGLIPTIN
  39. LYRICA [Concomitant]
     Active Substance: PREGABALIN
  40. LOVAZA [Concomitant]
     Active Substance: OMEGA-3-ACID ETHYL ESTERS
  41. LANTUS SOLOSTAR [Concomitant]
     Active Substance: INSULIN GLARGINE
  42. TOPROL XL [Concomitant]
     Active Substance: METOPROLOL SUCCINATE
  43. PROTONIX [Suspect]
     Active Substance: PANTOPRAZOLE SODIUM
     Indication: GASTROOESOPHAGEAL REFLUX DISEASE
     Route: 065
     Dates: start: 2018, end: 2019
  44. PEPCID [Concomitant]
     Active Substance: FAMOTIDINE
  45. ZANTAC [Concomitant]
     Active Substance: RANITIDINE HYDROCHLORIDE
  46. MYCOSTATIN [Concomitant]
     Active Substance: NYSTATIN
  47. DEPAKOTE [Concomitant]
     Active Substance: DIVALPROEX SODIUM
  48. AMARYL [Concomitant]
     Active Substance: GLIMEPIRIDE
     Indication: DIABETES MELLITUS
  49. LASIX [Concomitant]
     Active Substance: FUROSEMIDE
     Indication: FLUID RETENTION
  50. FLUCONAZOLE. [Concomitant]
     Active Substance: FLUCONAZOLE
  51. QUETIAPINE. [Concomitant]
     Active Substance: QUETIAPINE
  52. ROSUVASTATIN. [Concomitant]
     Active Substance: ROSUVASTATIN
  53. XANAX [Concomitant]
     Active Substance: ALPRAZOLAM
  54. MINOCIN [Concomitant]
     Active Substance: MINOCYCLINE HYDROCHLORIDE

REACTIONS (2)
  - Chronic kidney disease [Not Recovered/Not Resolved]
  - Gastrooesophageal reflux disease [Not Recovered/Not Resolved]
